FAERS Safety Report 21365357 (Version 2)
Quarter: 2022Q4

REPORT INFORMATION
  Report Type: Spontaneous
  Country: US (occurrence: US)
  Receive Date: 20220922
  Receipt Date: 20221111
  Transmission Date: 20230113
  Serious: No
  Sender: FDA-Public Use
  Company Number: US-BAYER-2022A132027

PATIENT
  Sex: Female

DRUGS (1)
  1. ESTRADIOL HEMIHYDRATE [Suspect]
     Active Substance: ESTRADIOL HEMIHYDRATE
     Route: 062

REACTIONS (3)
  - Product adhesion issue [None]
  - Product dose omission issue [None]
  - Wrong technique in product usage process [None]
